FAERS Safety Report 22592298 (Version 2)
Quarter: 2025Q2

REPORT INFORMATION
  Report Type: Report from Study
  Country: ES (occurrence: ES)
  Receive Date: 20230613
  Receipt Date: 20250607
  Transmission Date: 20250717
  Serious: Yes (Other)
  Sender: AUROBINDO
  Company Number: ES-ViiV Healthcare Limited-ES2023GSK075964

PATIENT
  Age: 52 Year
  Sex: Female

DRUGS (3)
  1. LAMIVUDINE [Suspect]
     Active Substance: LAMIVUDINE
     Indication: HIV infection
     Route: 065
  2. DOLUTEGRAVIR [Suspect]
     Active Substance: DOLUTEGRAVIR
     Indication: HIV infection
     Route: 065
  3. ABACAVIR SULFATE\DOLUTEGRAVIR SODIUM\LAMIVUDINE [Suspect]
     Active Substance: ABACAVIR SULFATE\DOLUTEGRAVIR SODIUM\LAMIVUDINE
     Indication: HIV infection
     Route: 065

REACTIONS (5)
  - Pathogen resistance [Unknown]
  - Blood HIV RNA increased [Unknown]
  - Virologic failure [Unknown]
  - Viral mutation identified [Unknown]
  - Treatment noncompliance [Unknown]
